FAERS Safety Report 4947452-6 (Version None)
Quarter: 2006Q1

REPORT INFORMATION
  Report Type: 
  Country: None (occurrence: None)
  Receive Date: 20060317
  Receipt Date: 20060306
  Transmission Date: 20060701
  Serious: Yes (Hospitalization)
  Sender: FDA-Public Use
  Company Number: SE-MERCK-0603SWE00009

PATIENT
  Age: 86 Year
  Sex: Female

DRUGS (5)
  1. FOSAMAX [Suspect]
     Indication: OSTEOPOROSIS
     Route: 048
     Dates: start: 20020813, end: 20051229
  2. FENTANYL [Concomitant]
     Route: 065
  3. FLUNITRAZEPAM [Concomitant]
     Route: 065
  4. FLUOXETINE HYDROCHLORIDE [Concomitant]
     Route: 065
  5. CYANOCOBALAMIN AND FOLIC ACID AND PYRIDOXINE HYDROCHLORIDE [Concomitant]
     Route: 065

REACTIONS (4)
  - DYSPHONIA [None]
  - GASTROINTESTINAL CARCINOMA [None]
  - OESOPHAGEAL HAEMORRHAGE [None]
  - OESOPHAGEAL STENOSIS [None]
